FAERS Safety Report 19259499 (Version 4)
Quarter: 2021Q4

REPORT INFORMATION
  Report Type: Spontaneous
  Country: US (occurrence: US)
  Receive Date: 20210514
  Receipt Date: 20211018
  Transmission Date: 20220303
  Serious: No
  Sender: FDA-Public Use
  Company Number: US-PFIZER INC-2021231864

PATIENT
  Age: 82 Year
  Sex: Female

DRUGS (3)
  1. IBRANCE [Suspect]
     Active Substance: PALBOCICLIB
     Dosage: 125 MG
  2. IBRANCE [Suspect]
     Active Substance: PALBOCICLIB
     Dosage: 100 MG
  3. IBRANCE [Suspect]
     Active Substance: PALBOCICLIB
     Dosage: 75 MG, CYCLIC (14 DAYS FOLLOWED BY 14 DAYS OFF)
     Route: 048

REACTIONS (4)
  - Neoplasm progression [Unknown]
  - Off label use [Unknown]
  - Product use issue [Unknown]
  - Laboratory test abnormal [Unknown]
